FAERS Safety Report 6824520-5 (Version None)
Quarter: 2010Q3

REPORT INFORMATION
  Report Type: 
  Country: None (occurrence: None)
  Receive Date: 20100708
  Receipt Date: 20061027
  Transmission Date: 20110219
  Serious: No
  Sender: FDA-Public Use
  Company Number: US-PFIZER INC-2006133459

PATIENT
  Sex: Female
  Weight: 57.15 kg

DRUGS (15)
  1. CHANTIX [Suspect]
     Indication: SMOKING CESSATION THERAPY
     Route: 048
     Dates: start: 20061005, end: 20061026
  2. NEXIUM [Concomitant]
  3. GLYBURIDE [Concomitant]
  4. LISINOPRIL [Concomitant]
  5. TOPROL-XL [Concomitant]
  6. FUROSEMIDE [Concomitant]
  7. FERGON [Concomitant]
  8. GLUCOSAMINE SULFATE [Concomitant]
  9. GARLIC [Concomitant]
  10. ACETYLSALICYLIC ACID [Concomitant]
  11. MULTI-VITAMINS [Concomitant]
  12. ALBUTEROL [Concomitant]
     Indication: CHRONIC OBSTRUCTIVE PULMONARY DISEASE
     Route: 055
  13. OTHER RESPIRATORY SYSTEM PRODUCTS [Concomitant]
  14. DUONEB [Concomitant]
  15. ZYBAN [Concomitant]

REACTIONS (1)
  - ABDOMINAL PAIN UPPER [None]
